FAERS Safety Report 11829828 (Version 1)
Quarter: 2015Q4

REPORT INFORMATION
  Report Type: Spontaneous
  Country: US (occurrence: US)
  Receive Date: 20151212
  Receipt Date: 20151212
  Transmission Date: 20160305
  Serious: No
  Sender: FDA-Public Use
  Company Number: US-BAUSCH-BL-2014-009518

PATIENT
  Sex: Male

DRUGS (1)
  1. CARAC [Suspect]
     Active Substance: FLUOROURACIL
     Indication: NEOPLASM SKIN
     Route: 061

REACTIONS (1)
  - Erythema [Unknown]

NARRATIVE: CASE EVENT DATE: 2014
